FAERS Safety Report 8907371 (Version 2)
Quarter: 2013Q1

REPORT INFORMATION
  Report Type: Spontaneous
  Country: US (occurrence: US)
  Receive Date: 20121114
  Receipt Date: 20130104
  Transmission Date: 20140127
  Serious: Yes (Hospitalization)
  Sender: FDA-Public Use
  Company Number: US-009507513-1211USA001177

PATIENT
  Age: 70 None
  Sex: Female

DRUGS (3)
  1. COZAAR [Suspect]
     Indication: HYPERTENSION
     Dosage: 50 MG, QAM
     Route: 048
     Dates: start: 2002
  2. LASIX (FUROSEMIDE) [Concomitant]
  3. ATENOLOL [Concomitant]

REACTIONS (5)
  - Surgery [Recovering/Resolving]
  - Product taste abnormal [Unknown]
  - Product odour abnormal [Unknown]
  - Gastroenteritis viral [Recovering/Resolving]
  - Nausea [Recovering/Resolving]
